FAERS Safety Report 7337269-X (Version None)
Quarter: 2011Q1

REPORT INFORMATION
  Report Type: 
  Country: None (occurrence: None)
  Receive Date: 20110308
  Receipt Date: 20110228
  Transmission Date: 20110831
  Serious: Yes (Hospitalization)
  Sender: FDA-Public Use
  Company Number: US-ASTELLAS-2011US000829

PATIENT

DRUGS (3)
  1. METOPROLOL TARTRATE [Concomitant]
     Indication: BLOOD PRESSURE
     Dosage: 100 MG AM, 50 MG PM
     Route: 048
     Dates: start: 20030101
  2. NORVASC [Concomitant]
     Indication: BLOOD PRESSURE
     Dosage: 1 DF, UID/QD
     Route: 048
     Dates: start: 20030101
  3. PROGRAF [Suspect]
     Indication: LIVER TRANSPLANT
     Dosage: 0.5 MG, BID
     Route: 048
     Dates: start: 20050108

REACTIONS (2)
  - SCAR [None]
  - DYSPNOEA [None]
